FAERS Safety Report 13682674 (Version 2)
Quarter: 2017Q2

REPORT INFORMATION
  Report Type: Spontaneous
  Country: US (occurrence: US)
  Receive Date: 20170623
  Receipt Date: 20170623
  Transmission Date: 20170830
  Serious: No
  Sender: FDA-Public Use
  Company Number: US-MALLINCKRODT-T201604329

PATIENT
  Age: 19 Year

DRUGS (1)
  1. H.P. ACTHAR [Suspect]
     Active Substance: CORTICOTROPIN
     Indication: JUVENILE IDIOPATHIC ARTHRITIS
     Dosage: UNK
     Route: 065

REACTIONS (4)
  - Injection site reaction [Recovered/Resolved]
  - Throat tightness [Recovered/Resolved]
  - Skin reaction [Recovered/Resolved]
  - Wheezing [Recovered/Resolved]
